FAERS Safety Report 4919070-7 (Version None)
Quarter: 2006Q1

REPORT INFORMATION
  Report Type: 
  Country: None (occurrence: None)
  Receive Date: 20060222
  Receipt Date: 20060213
  Transmission Date: 20060701
  Serious: No
  Sender: FDA-Public Use
  Company Number: 2006SE00991

PATIENT

DRUGS (1)
  1. SEROQUEL [Suspect]

REACTIONS (1)
  - LEUKOPENIA [None]
